FAERS Safety Report 14139516 (Version 1)
Quarter: 2017Q4

REPORT INFORMATION
  Report Type: Spontaneous
  Country: AT (occurrence: AT)
  Receive Date: 20171028
  Receipt Date: 20171028
  Transmission Date: 20180321
  Serious: Yes (Other)
  Sender: FDA-Public Use
  Company Number: AT-AMGEN-AUTSP2017160688

PATIENT
  Age: 74 Year
  Sex: Male

DRUGS (18)
  1. REPATHA [Suspect]
     Active Substance: EVOLOCUMAB
     Indication: PRODUCT USED FOR UNKNOWN INDICATION
     Dosage: UNK UNK, Q4WK
     Route: 065
     Dates: start: 20170616, end: 20170728
  2. THROMBO ASS [Suspect]
     Active Substance: ASPIRIN
     Indication: CORONARY ARTERY DISEASE
     Route: 065
  3. NEXIUM [Concomitant]
     Active Substance: ESOMEPRAZOLE MAGNESIUM
     Dosage: 40 UNK, QD
  4. PREDNISOLON [Concomitant]
     Active Substance: PREDNISOLONE
     Dosage: 1 MG, 2 TIMES/WK
  5. SIFROL [Concomitant]
     Active Substance: PRAMIPEXOLE
     Dosage: 1.05 UNK, QD
  6. PRALUENT [Concomitant]
     Active Substance: ALIROCUMAB
     Indication: LOW DENSITY LIPOPROTEIN
     Dosage: 75 MG, Q2WK
     Route: 058
     Dates: start: 20170829
  7. PLAVIX [Concomitant]
     Active Substance: CLOPIDOGREL BISULFATE
  8. GAVISCON [Concomitant]
     Active Substance: ALUMINUM HYDROXIDE\MAGNESIUM CARBONATE
  9. CALCIUM [Concomitant]
     Active Substance: CALCIUM
     Dosage: 1500 MG, QD
  10. DESLORATADINE. [Concomitant]
     Active Substance: DESLORATADINE
     Dosage: 5 MG, QD
  11. ARMOLIPID PLUS [Concomitant]
     Active Substance: DIETARY SUPPLEMENT
     Dosage: UNK
  12. VITAMIN K2 [Concomitant]
     Active Substance: MENAQUINONE 6
     Dosage: UNK
  13. PROLIA [Suspect]
     Active Substance: DENOSUMAB
     Indication: PRODUCT USED FOR UNKNOWN INDICATION
     Dosage: UNK
     Route: 065
  14. NEUROBION FORTE [Concomitant]
     Active Substance: CYANOCOBALAMIN\PYRIDOXINE HYDROCHLORIDE\THIAMINE DISULFIDE
     Dosage: UNK, TID
  15. VITAMIN D [Concomitant]
     Active Substance: CHOLECALCIFEROL
     Dosage: 20 DROPS, QWK
  16. VITAMIN D [Concomitant]
     Active Substance: CHOLECALCIFEROL
     Dosage: 40 DROPS, QWK
  17. EZETROL [Concomitant]
     Active Substance: EZETIMIBE
  18. CRESTOR [Concomitant]
     Active Substance: ROSUVASTATIN CALCIUM
     Dosage: 10 MG, UNK

REACTIONS (26)
  - Acute myocardial infarction [Unknown]
  - Hyperhomocysteinaemia [Unknown]
  - Headache [Unknown]
  - Type 2 diabetes mellitus [Recovering/Resolving]
  - Sleep disorder [Not Recovered/Not Resolved]
  - Gastritis erosive [Unknown]
  - Hyponatraemia [Unknown]
  - Urinary tract infection [Unknown]
  - Coronary artery disease [Unknown]
  - Influenza like illness [Recovered/Resolved]
  - Hypertension [Unknown]
  - Angina pectoris [Unknown]
  - Parkinson^s disease [Unknown]
  - Gastrooesophageal reflux disease [Unknown]
  - Aortic aneurysm [Unknown]
  - Osteoarthritis [Unknown]
  - Pain [Recovered/Resolved]
  - Rash papular [Recovered/Resolved]
  - Neurogenic bladder [Unknown]
  - Cataract [Unknown]
  - Myalgia [Not Recovered/Not Resolved]
  - Hypercholesterolaemia [Unknown]
  - Intervertebral disc protrusion [Unknown]
  - Benign prostatic hyperplasia [Unknown]
  - Duodenitis [Unknown]
  - Large intestine polyp [Unknown]

NARRATIVE: CASE EVENT DATE: 201411
